FAERS Safety Report 24445800 (Version 1)
Quarter: 2024Q4

REPORT INFORMATION
  Report Type: Spontaneous
  Country: US (occurrence: US)
  Receive Date: 20241016
  Receipt Date: 20241016
  Transmission Date: 20250115
  Serious: Yes (Other)
  Sender: Unknown Manufacturer
  Company Number: SHLD2400034

PATIENT
  Sex: Female

DRUGS (2)
  1. ACCRUFER [Suspect]
     Active Substance: FERRIC MALTOL
     Indication: Iron deficiency
     Dosage: 1 CAPSULE, BID
     Route: 048
     Dates: end: 20240318
  2. ANTICOAGULANT CITRATE DEXTROSE [CITRIC ACID;GLUCOSE;SODIUM CITRATE] [Concomitant]
     Indication: Product used for unknown indication
     Route: 065

REACTIONS (5)
  - Constipation [Unknown]
  - Feeling abnormal [Unknown]
  - Dehydration [Unknown]
  - Haemorrhoids [Unknown]
  - Energy increased [Unknown]
